FAERS Safety Report 4421896-3 (Version None)
Quarter: 2004Q3

REPORT INFORMATION
  Report Type: 
  Country: None (occurrence: None)
  Receive Date: 20040709
  Receipt Date: 20030624
  Transmission Date: 20050211
  Serious: Yes (Other)
  Sender: FDA-Public Use
  Company Number: US-SHR-03-009929

PATIENT
  Sex: Female

DRUGS (1)
  1. ULTRAVIST 300 [Suspect]
     Dosage: 1 DOSE, INTRAVENOUS
     Route: 042

REACTIONS (2)
  - LARYNGEAL OEDEMA [None]
  - SWELLING FACE [None]
